FAERS Safety Report 8339439-0 (Version None)
Quarter: 2012Q2

REPORT INFORMATION
  Report Type: 
  Country: None (occurrence: None)
  Receive Date: 20120507
  Receipt Date: 20120425
  Transmission Date: 20120825
  Serious: Yes (Hospitalization)
  Sender: FDA-Public Use
  Company Number: GB-TEVA-334861ISR

PATIENT
  Age: 65 Year
  Sex: Female

DRUGS (10)
  1. CALCIUM AND COLECALCIFEROL [Concomitant]
     Dosage: 1.5G/400UNIT
  2. RAMIPRIL [Suspect]
     Indication: HYPERTENSION
     Dosage: LONGTERM, IN THE MORNING
     Route: 048
  3. OMEPRAZOLE [Concomitant]
  4. GAVISCON [Concomitant]
     Dosage: 5-10MLS FOUR TIMES DAILY
     Route: 048
  5. TPN [Concomitant]
     Dosage: CALOGEN - 30ML THREE TIMES A DAY ENSURE PLUS MILKSHAKE
  6. AMLODIPINE [Suspect]
     Indication: HYPERTENSION
     Dosage: LONGTERM, IN THE MORNING
     Route: 048
  7. VENTOLIN [Concomitant]
     Route: 055
  8. GLICLAZIDE [Concomitant]
     Dosage: HALF A DAY
  9. ASPIRIN [Concomitant]
  10. ATORVASTATIN CALCIUM [Concomitant]
     Dosage: 20MG AND 40MG

REACTIONS (3)
  - FALL [None]
  - HYPOTENSION [None]
  - JOINT SWELLING [None]
